FAERS Safety Report 12257327 (Version 2)
Quarter: 2016Q2

REPORT INFORMATION
  Report Type: Spontaneous
  Country: RU (occurrence: RU)
  Receive Date: 20160412
  Receipt Date: 20160422
  Transmission Date: 20160815
  Serious: Yes (Other)
  Sender: FDA-Public Use
  Company Number: RU-JNJFOC-20160407506

PATIENT

DRUGS (3)
  1. SIMEPREVIR [Suspect]
     Active Substance: SIMEPREVIR
     Indication: HEPATITIS C
     Dosage: FOR 12 WEEKS
     Route: 048
  2. RIBAVIRIN. [Suspect]
     Active Substance: RIBAVIRIN
     Indication: HEPATITIS C
     Dosage: 1000-1200 MG/DAY FOR 24 OR 48 WEEKS.
     Route: 065
  3. PEGINTERFERON ALFA-2A [Suspect]
     Active Substance: PEGINTERFERON ALFA-2A
     Indication: HEPATITIS C
     Dosage: FOR 24 OR 36 WEEKS
     Route: 065

REACTIONS (8)
  - Thrombocytopenia [Unknown]
  - Infection [Unknown]
  - Pruritus [Unknown]
  - Anaemia [Unknown]
  - Influenza like illness [Unknown]
  - Neutropenia [Unknown]
  - Weight decreased [Unknown]
  - Blood bilirubin increased [Unknown]
